FAERS Safety Report 6038364-8 (Version None)
Quarter: 2009Q1

REPORT INFORMATION
  Report Type: 
  Country: None (occurrence: None)
  Receive Date: 20090114
  Receipt Date: 20090114
  Transmission Date: 20090719
  Serious: Yes (Other)
  Sender: FDA-Public Use
  Company Number: None

PATIENT
  Sex: Female
  Weight: 78.0187 kg

DRUGS (2)
  1. LIPITOR [Suspect]
     Indication: BLOOD CHOLESTEROL INCREASED
     Dosage: 10 MG 1 QD PO
     Route: 048
     Dates: start: 20080401, end: 20081231
  2. LIPITOR [Suspect]
     Indication: FAMILIAL RISK FACTOR
     Dosage: 10 MG 1 QD PO
     Route: 048
     Dates: start: 20080401, end: 20081231

REACTIONS (15)
  - ALOPECIA [None]
  - ARTHRALGIA [None]
  - CHONDROPATHY [None]
  - GAIT DISTURBANCE [None]
  - HAIR GROWTH ABNORMAL [None]
  - HEADACHE [None]
  - JOINT SPRAIN [None]
  - LIGAMENT SPRAIN [None]
  - MUSCULAR WEAKNESS [None]
  - MUSCULOSKELETAL PAIN [None]
  - NAIL DISORDER [None]
  - NECK PAIN [None]
  - PAIN IN EXTREMITY [None]
  - PAIN IN JAW [None]
  - STRESS [None]
